FAERS Safety Report 6886868-8 (Version None)
Quarter: 2010Q3

REPORT INFORMATION
  Report Type: 
  Country: None (occurrence: None)
  Receive Date: 20100727
  Receipt Date: 20100629
  Transmission Date: 20110219
  Serious: Yes (Death)
  Sender: FDA-Public Use
  Company Number: PPC201000035

PATIENT
  Age: 63 Year
  Sex: Female

DRUGS (11)
  1. DIPYRIDAMOLE [Suspect]
     Indication: CARDIAC STRESS TEST
     Dosage: 0L56 MG/KG, ONCE, INTRAVENOUS
     Route: 042
     Dates: start: 20100615, end: 20100615
  2. ASPIRIN [Concomitant]
  3. ATORVASTATIN CALCIUM [Concomitant]
  4. BISOPROLOL FUMARATE [Concomitant]
  5. CIPROFLOXACIN [Concomitant]
  6. HEPARIN SODIUM [Concomitant]
  7. LANSOPRAZOLE [Concomitant]
  8. NIFEDIPINE [Concomitant]
  9. NITROGLYCERIN [Concomitant]
  10. RAMIPRIL [Concomitant]
  11. SPIRONOLACTONE [Concomitant]

REACTIONS (6)
  - ABDOMINAL PAIN UPPER [None]
  - DIZZINESS [None]
  - HYPOTENSION [None]
  - NAUSEA [None]
  - UNRESPONSIVE TO STIMULI [None]
  - VOMITING [None]
